FAERS Safety Report 9495190 (Version 1)
Quarter: 2013Q3

REPORT INFORMATION
  Report Type: Spontaneous
  Country: JP (occurrence: JP)
  Receive Date: 20130903
  Receipt Date: 20130903
  Transmission Date: 20140515
  Serious: Yes (Other)
  Sender: FDA-Public Use
  Company Number: JP-ABBOTT-13P-087-1141750-00

PATIENT
  Age: 68 Year
  Sex: Male

DRUGS (2)
  1. LEUPLIN FOR INJECTION KIT 3.75 [Suspect]
     Indication: PROSTATE CANCER
     Route: 058
     Dates: start: 20130801
  2. BICALUTAMIDE [Suspect]
     Indication: PRODUCT USED FOR UNKNOWN INDICATION
     Route: 048

REACTIONS (1)
  - Interstitial lung disease [Unknown]
